FAERS Safety Report 9742143 (Version 1)
Quarter: 2013Q4

REPORT INFORMATION
  Report Type: Spontaneous
  Country: US (occurrence: US)
  Receive Date: 20131210
  Receipt Date: 20131210
  Transmission Date: 20140711
  Serious: Yes (Hospitalization)
  Sender: FDA-Public Use
  Company Number: US-ENDO PHARMACEUTICALS INC.-BACL20120001

PATIENT
  Age: 56 Year
  Sex: Male
  Weight: 72.64 kg

DRUGS (4)
  1. BACLOFEN TABLETS 10MG [Suspect]
     Indication: MUSCLE SPASMS
     Route: 048
     Dates: start: 20120213, end: 20120215
  2. BACLOFEN TABLETS 10MG [Suspect]
     Route: 048
     Dates: start: 20120217
  3. BACLOFEN TABLETS 10MG [Suspect]
     Route: 048
     Dates: start: 20120303, end: 20120305
  4. TIZANIDINE HCL [Concomitant]
     Dosage: UNKNOWN
     Route: 048
     Dates: start: 201202, end: 201202

REACTIONS (10)
  - Chest pain [Unknown]
  - Bronchitis [Unknown]
  - Pain in jaw [Unknown]
  - Acne [Recovered/Resolved]
  - Aphthous stomatitis [Not Recovered/Not Resolved]
  - Chapped lips [Not Recovered/Not Resolved]
  - Epistaxis [Not Recovered/Not Resolved]
  - Headache [Unknown]
  - Rash [Unknown]
  - Drug effect decreased [Recovered/Resolved]
